FAERS Safety Report 18429833 (Version 1)
Quarter: 2020Q4

REPORT INFORMATION
  Report Type: Other
  Country: CA (occurrence: CA)
  Receive Date: 20201027
  Receipt Date: 20201027
  Transmission Date: 20210114
  Serious: Yes (Other)
  Sender: FDA-Public Use
  Company Number: CA-COLGATE PALMOLIVE COMPANY-20201002063

PATIENT

DRUGS (23)
  1. ARAVA [Suspect]
     Active Substance: LEFLUNOMIDE
  2. OXYCODONE TEREPHTHALATE [Suspect]
     Active Substance: OXYCODONE TEREPHTHALATE
  3. ACETAMINOPHEN. [Suspect]
     Active Substance: ACETAMINOPHEN
  4. SIMPONI [Suspect]
     Active Substance: GOLIMUMAB
     Route: 058
  5. CHOLECALCIFEROL [Concomitant]
     Active Substance: CHOLECALCIFEROL
  6. OMEGA-3 [DOCOSAHEXAENOIC ACID;EICOSAPENTAENOIC ACID] [Concomitant]
     Active Substance: DOCONEXENT\ICOSAPENT
  7. VENTOLIN [Concomitant]
     Active Substance: ALBUTEROL SULFATE
  8. ZOPICLONE [Concomitant]
     Active Substance: ZOPICLONE
  9. PANTOPRAZOLE [Concomitant]
     Active Substance: PANTOPRAZOLE
  10. PERIOGARD [Suspect]
     Active Substance: CHLORHEXIDINE GLUCONATE
  11. METHOTREXATE. [Suspect]
     Active Substance: METHOTREXATE
  12. REACTINE [CETIRIZINE HYDROCHLORIDE] [Concomitant]
     Active Substance: CETIRIZINE HYDROCHLORIDE
  13. IBUPROFEN. [Concomitant]
     Active Substance: IBUPROFEN
  14. TYLENOL [Concomitant]
     Active Substance: ACETAMINOPHEN
  15. OXYCODONE [Suspect]
     Active Substance: OXYCODONE
  16. CIMZIA [Suspect]
     Active Substance: CERTOLIZUMAB PEGOL
     Indication: RHEUMATOID ARTHRITIS
     Dosage: 400 MG
     Route: 058
  17. HYDROXYCHLOROQUINE [Concomitant]
     Active Substance: HYDROXYCHLOROQUINE
  18. ASCORBIC ACID. [Concomitant]
     Active Substance: ASCORBIC ACID
  19. CHLORHEXIDINE UNSPECIFIED [Suspect]
     Active Substance: CHLORHEXIDINE
  20. ENBREL [Suspect]
     Active Substance: ETANERCEPT
     Indication: RHEUMATOID ARTHRITIS
     Route: 058
  21. ACTEMRA [Suspect]
     Active Substance: TOCILIZUMAB
  22. ORENCIA [Suspect]
     Active Substance: ABATACEPT
  23. PREDNISONE. [Concomitant]
     Active Substance: PREDNISONE

REACTIONS (21)
  - Pruritus [Unknown]
  - Back pain [Unknown]
  - Rash [Unknown]
  - Diarrhoea [Unknown]
  - Pain [Unknown]
  - Muscle spasticity [Unknown]
  - Night sweats [Unknown]
  - Peripheral swelling [Unknown]
  - Abdominal pain upper [Unknown]
  - Headache [Unknown]
  - Vomiting [Unknown]
  - Lower respiratory tract infection [Unknown]
  - Urticaria [Unknown]
  - Sinusitis [Unknown]
  - Body temperature increased [Unknown]
  - Joint swelling [Unknown]
  - Insomnia [Unknown]
  - Ear pain [Unknown]
  - Contraindicated product administered [Unknown]
  - Respiratory disorder [Unknown]
  - Asthenia [Unknown]
